FAERS Safety Report 22060473 (Version 1)
Quarter: 2023Q1

REPORT INFORMATION
  Report Type: Spontaneous
  Country: US (occurrence: None)
  Receive Date: 20230303
  Receipt Date: 20230303
  Transmission Date: 20230417
  Serious: Yes (Hospitalization, Disabling, Other)
  Sender: FDA-Public Use
  Company Number: 2023A048046

PATIENT
  Sex: Male
  Weight: 86.2 kg

DRUGS (1)
  1. FARXIGA [Suspect]
     Active Substance: DAPAGLIFLOZIN PROPANEDIOL
     Indication: Glycosylated haemoglobin increased

REACTIONS (3)
  - Blindness day [Not Recovered/Not Resolved]
  - Renal failure [Not Recovered/Not Resolved]
  - Ketoacidosis [Not Recovered/Not Resolved]
